FAERS Safety Report 24966850 (Version 1)
Quarter: 2025Q1

REPORT INFORMATION
  Report Type: Spontaneous
  Country: MY (occurrence: MY)
  Receive Date: 20250213
  Receipt Date: 20250213
  Transmission Date: 20250409
  Serious: Yes (Hospitalization)
  Sender: ROCHE
  Company Number: MY-BoehringerIngelheim-2025-BI-002522

PATIENT
  Age: 74 Year
  Sex: Male

DRUGS (1)
  1. ALTEPLASE [Suspect]
     Active Substance: ALTEPLASE
     Indication: Ischaemic stroke
     Dosage: 50 MG/ML
     Route: 042
     Dates: start: 20240225, end: 20240225

REACTIONS (2)
  - Cerebral haemorrhage [Recovering/Resolving]
  - NIH stroke scale score increased [Recovering/Resolving]

NARRATIVE: CASE EVENT DATE: 20240226
